FAERS Safety Report 13704263 (Version 1)
Quarter: 2017Q2

REPORT INFORMATION
  Report Type: Spontaneous
  Country: US (occurrence: US)
  Receive Date: 20170630
  Receipt Date: 20170630
  Transmission Date: 20170830
  Serious: No
  Sender: FDA-Public Use
  Company Number: US-BRISTOL-MYERS SQUIBB COMPANY-BMS-2017-057747

PATIENT
  Age: 19 Year
  Sex: Female

DRUGS (1)
  1. ABILIFY [Suspect]
     Active Substance: ARIPIPRAZOLE
     Indication: BIPOLAR DISORDER
     Dosage: UNK
     Route: 065
     Dates: start: 200312, end: 201412

REACTIONS (6)
  - Personality disorder [Recovered/Resolved]
  - Weight increased [Unknown]
  - Sexually inappropriate behaviour [Recovering/Resolving]
  - Gambling disorder [Recovered/Resolved]
  - Obsessive-compulsive disorder [Recovering/Resolving]
  - Behavioral addiction [Recovered/Resolved]
